FAERS Safety Report 6357503-2 (Version None)
Quarter: 2009Q3

REPORT INFORMATION
  Report Type: 
  Country: None (occurrence: None)
  Receive Date: 20090916
  Receipt Date: 20090908
  Transmission Date: 20100115
  Serious: Yes (Other)
  Sender: FDA-Public Use
  Company Number: US-ASTRAZENECA-2009UW13298

PATIENT
  Age: 35 Year
  Sex: Male
  Weight: 108.9 kg

DRUGS (5)
  1. SEROQUEL [Suspect]
     Indication: BIPOLAR DISORDER
     Route: 048
     Dates: start: 20030101
  2. SEROQUEL [Suspect]
     Indication: DEPRESSION
     Route: 048
     Dates: start: 20030101
  3. RISPERDAL [Concomitant]
     Indication: BIPOLAR DISORDER
     Dates: start: 20070101, end: 20080214
  4. GEODON [Concomitant]
     Dates: start: 20030913
  5. HALDOL [Concomitant]
     Dates: start: 20030913

REACTIONS (6)
  - BACK DISORDER [None]
  - BLINDNESS [None]
  - DIABETES MELLITUS [None]
  - DIABETIC KETOACIDOSIS [None]
  - INTERVERTEBRAL DISC PROTRUSION [None]
  - NEUROPATHY PERIPHERAL [None]
